FAERS Safety Report 13231082 (Version 4)
Quarter: 2017Q1

REPORT INFORMATION
  Report Type: Spontaneous
  Country: TW (occurrence: TW)
  Receive Date: 20170214
  Receipt Date: 20170322
  Transmission Date: 20170428
  Serious: Yes (Death, Hospitalization, Other)
  Sender: FDA-Public Use
  Company Number: TW-PFIZER INC-2017059268

PATIENT
  Age: 73 Year
  Sex: Female

DRUGS (8)
  1. EXVIERA [Concomitant]
     Active Substance: DASABUVIR
     Indication: HEPATITIS C
     Dosage: UNK
     Route: 048
     Dates: start: 20170125, end: 20170208
  2. METHOTREXATE. [Concomitant]
     Active Substance: METHOTREXATE
     Dosage: 1 TABLET OF 2.5 MG, 3 TIMES A WEEK
     Dates: end: 20170208
  3. XELJANZ [Suspect]
     Active Substance: TOFACITINIB CITRATE
     Indication: RHEUMATOID ARTHRITIS
     Dosage: 5 MG, 2X/DAY
     Route: 048
     Dates: start: 20150923
  4. VIEKIRAX [Concomitant]
     Active Substance: OMBITASVIR\PARITAPREVIR\RITONAVIR
     Indication: HEPATITIS C
     Dosage: UNK
     Route: 048
     Dates: start: 20170125, end: 20170208
  5. SALAZINE [Concomitant]
     Active Substance: SULFASALAZINE
     Dosage: 500 MG, 2X/DAY (1 TABLET TWICE DAILY)
     Dates: end: 20170208
  6. ARCOXIA [Concomitant]
     Active Substance: ETORICOXIB
     Dosage: 1 TABLET OF 60 MG AS NEEDED ONCE DAILY
     Dates: end: 20170208
  7. FOLIC ACID. [Concomitant]
     Active Substance: FOLIC ACID
     Dosage: 5 MG, WEEKLY (1 TABLET)
     Dates: end: 20170208
  8. HYZAAR [Concomitant]
     Active Substance: HYDROCHLOROTHIAZIDE\LOSARTAN POTASSIUM
     Indication: HYPERTENSION
     Dosage: 50 MG, 1X/DAY (OF 100MG/TAB) 0.5 TABLET ONCE DAILY

REACTIONS (6)
  - Jaundice [Unknown]
  - Decreased appetite [Unknown]
  - Sepsis [Fatal]
  - Oedema [Unknown]
  - Hepatic failure [Fatal]
  - Hepatotoxicity [Unknown]

NARRATIVE: CASE EVENT DATE: 2017
